FAERS Safety Report 5536830-2 (Version None)
Quarter: 2007Q4

REPORT INFORMATION
  Report Type: 
  Country: None (occurrence: None)
  Receive Date: 20071206
  Receipt Date: 20070323
  Transmission Date: 20080405
  Serious: Yes (Hospitalization, Other)
  Sender: FDA-Public Use
  Company Number: US-AMGEN-STX211161

PATIENT
  Sex: Female
  Weight: 56.3 kg

DRUGS (9)
  1. ENBREL [Suspect]
     Indication: RHEUMATOID ARTHRITIS
     Route: 058
     Dates: start: 20060731, end: 20070201
  2. METHOTREXATE [Concomitant]
  3. ALBUTEROL [Concomitant]
  4. COMBIVENT [Concomitant]
  5. FLONASE [Concomitant]
  6. PREDNISONE TAB [Concomitant]
  7. RANITIDINE HCL [Concomitant]
  8. FOSAMAX [Concomitant]
  9. DARVOCET [Concomitant]

REACTIONS (3)
  - MYCOBACTERIA TEST [None]
  - PNEUMONIA [None]
  - TUBERCULOSIS SKIN TEST POSITIVE [None]
